FAERS Safety Report 23951039 (Version 3)
Quarter: 2024Q3

REPORT INFORMATION
  Report Type: Report from Study
  Country: JP (occurrence: JP)
  Receive Date: 20240607
  Receipt Date: 20240701
  Transmission Date: 20241016
  Serious: Yes (Other)
  Sender: JOHNSON AND JOHNSON
  Company Number: JP-JNJFOC-20240613660

PATIENT

DRUGS (1)
  1. DARATUMUMAB [Suspect]
     Active Substance: DARATUMUMAB
     Indication: Plasma cell myeloma
     Dosage: DOSE UNKNOWN
     Route: 058

REACTIONS (9)
  - Plasma cell myeloma [Unknown]
  - Plasma cell myeloma refractory [Unknown]
  - Therapeutic product effect incomplete [Unknown]
  - Myelosuppression [Unknown]
  - Myelodysplastic syndrome [Unknown]
  - Drug intolerance [Unknown]
  - Infection [Unknown]
  - Adverse reaction [Unknown]
  - Skin disorder [Unknown]
